FAERS Safety Report 18940211 (Version 1)
Quarter: 2021Q1

REPORT INFORMATION
  Report Type: Spontaneous
  Country: US (occurrence: US)
  Receive Date: 20210225
  Receipt Date: 20210225
  Transmission Date: 20210420
  Serious: Yes (Hospitalization)
  Sender: FDA-Public Use
  Company Number: None

PATIENT
  Age: 61 Year
  Sex: Female

DRUGS (15)
  1. LEVALBUTEROL. [Concomitant]
     Active Substance: LEVALBUTEROL
     Dates: start: 20210129
  2. TRAMADOL. [Concomitant]
     Active Substance: TRAMADOL
     Dates: start: 20201222
  3. ARNUITY ELPITA [Concomitant]
     Dates: start: 20200921
  4. XELJANZ [Suspect]
     Active Substance: TOFACITINIB CITRATE
     Indication: GASTROOESOPHAGEAL REFLUX DISEASE
     Route: 048
     Dates: start: 20200123
  5. ATORVASTATIN [Concomitant]
     Active Substance: ATORVASTATIN
     Dates: start: 20201230
  6. LOSARTAN/HCT [Concomitant]
     Active Substance: HYDROCHLOROTHIAZIDE\LOSARTAN POTASSIUM
     Dates: start: 20200908
  7. BRILINTA [Concomitant]
     Active Substance: TICAGRELOR
     Dates: start: 20201231
  8. DULOXETINE. [Concomitant]
     Active Substance: DULOXETINE
     Dates: start: 20210109
  9. DILTIAZEM. [Concomitant]
     Active Substance: DILTIAZEM
     Dates: start: 20201117
  10. FLUOROURACIL. [Concomitant]
     Active Substance: FLUOROURACIL
     Dates: start: 20200904
  11. METOPROLO SUCC [Concomitant]
     Dates: start: 20201230
  12. SOTALOL HCL [Concomitant]
     Active Substance: SOTALOL
     Dates: start: 20200919
  13. CLINDAMYCIN. [Concomitant]
     Active Substance: CLINDAMYCIN
     Dates: start: 20201030
  14. PREGABALIN. [Concomitant]
     Active Substance: PREGABALIN
     Dates: start: 20201017
  15. ALPRAZOLAM. [Concomitant]
     Active Substance: ALPRAZOLAM
     Dates: start: 20210126

REACTIONS (1)
  - Myocardial infarction [None]

NARRATIVE: CASE EVENT DATE: 20201201
